FAERS Safety Report 10013709 (Version 1)
Quarter: 2014Q1

REPORT INFORMATION
  Report Type: Spontaneous
  Country: US (occurrence: US)
  Receive Date: 20140316
  Receipt Date: 20140316
  Transmission Date: 20141002
  Serious: Yes (Other)
  Sender: FDA-Public Use
  Company Number: US-BAYER-2014-036958

PATIENT
  Sex: Female

DRUGS (2)
  1. ALEVE CAPLET [Suspect]
     Indication: MYALGIA
  2. ALEVE CAPLET [Suspect]
     Indication: ARTHRALGIA

REACTIONS (3)
  - Gastric ulcer [None]
  - Therapeutic response unexpected [None]
  - Pain [None]
